FAERS Safety Report 7489929-8 (Version None)
Quarter: 2011Q2

REPORT INFORMATION
  Report Type: 
  Country: None (occurrence: None)
  Receive Date: 20110519
  Receipt Date: 20110504
  Transmission Date: 20111010
  Serious: Yes (Other)
  Sender: FDA-Public Use
  Company Number: CA-JNJFOC-20110503125

PATIENT
  Sex: Male
  Weight: 72.58 kg

DRUGS (10)
  1. REMICADE [Suspect]
     Indication: CROHN'S DISEASE
     Route: 042
  2. APO-SALVENT [Concomitant]
     Dosage: 1 TO 2 PUFFS, PRN
     Route: 055
  3. ARIPIPRAZOLE [Concomitant]
  4. METHOTREXATE [Concomitant]
  5. CALCIUM CARBONATE [Concomitant]
  6. FERROUS SULFATE TAB [Concomitant]
     Indication: VITAMIN SUPPLEMENTATION
  7. SOLU-CORTEF [Concomitant]
     Indication: PREMEDICATION
     Route: 042
     Dates: start: 20110504
  8. ASACOL [Concomitant]
  9. REMICADE [Suspect]
     Dosage: INFUSION NUMBER 8
     Route: 042
     Dates: start: 20110504
  10. REMICADE [Suspect]
     Dosage: DOSE #7
     Route: 042
     Dates: start: 20110311

REACTIONS (5)
  - CHEST PAIN [None]
  - DYSPNOEA [None]
  - FLUSHING [None]
  - INFUSION RELATED REACTION [None]
  - RESTLESSNESS [None]
